FAERS Safety Report 6616928-8 (Version None)
Quarter: 2010Q1

REPORT INFORMATION
  Report Type: 
  Country: None (occurrence: None)
  Receive Date: 20100301
  Receipt Date: 20100224
  Transmission Date: 20100710
  Serious: Yes (Death)
  Sender: FDA-Public Use
  Company Number: ALL1-2010-00919

PATIENT
  Age: 54 Year
  Sex: Male

DRUGS (1)
  1. FOSRENOL [Suspect]
     Indication: DRUG USE FOR UNKNOWN INDICATION
     Dosage: 1000 MG WITH MEALS, ORAL
     Route: 048
     Dates: start: 20080101

REACTIONS (1)
  - DEATH [None]
